FAERS Safety Report 8102535-7 (Version None)
Quarter: 2012Q1

REPORT INFORMATION
  Report Type: 
  Country: None (occurrence: None)
  Receive Date: 20120126
  Receipt Date: 20120109
  Transmission Date: 20120608
  Serious: Yes (Death)
  Sender: FDA-Public Use
  Company Number: JPI-P-007188

PATIENT
  Age: 79 Year
  Sex: Female

DRUGS (2)
  1. UNSPECIFIED NARCOLEPSY MEDICATION [Concomitant]
  2. XYREM [Suspect]
     Indication: NARCOLEPSY
     Dosage: 3 GM (3 GM, 1 IN 1 D), ORAL
     Route: 048
     Dates: start: 20080731

REACTIONS (5)
  - CHRONIC OBSTRUCTIVE PULMONARY DISEASE [None]
  - BACTERIAL SEPSIS [None]
  - LEUKAEMIA [None]
  - RESPIRATORY FAILURE [None]
  - ANAEMIA [None]
